FAERS Safety Report 21403150 (Version 1)
Quarter: 2022Q3

REPORT INFORMATION
  Report Type: Spontaneous
  Country: US (occurrence: None)
  Receive Date: 20220930
  Receipt Date: 20220930
  Transmission Date: 20221026
  Serious: No
  Sender: FDA-Public Use
  Company Number: None

PATIENT
  Age: 65 Year
  Sex: Male

DRUGS (7)
  1. OTEZLA [Suspect]
     Active Substance: APREMILAST
     Indication: Psoriasis
     Dosage: FREQUENCY : TWICE A DAY;?
     Route: 048
     Dates: start: 20220818
  2. LISINOPRIL [Concomitant]
     Active Substance: LISINOPRIL
  3. CLOBETASOL [Concomitant]
     Active Substance: CLOBETASOL
  4. TRIAZOLAM [Concomitant]
     Active Substance: TRIAZOLAM
  5. AMLODIPINE [Concomitant]
     Active Substance: AMLODIPINE BESYLATE
  6. SILDENAFIL [Concomitant]
     Active Substance: SILDENAFIL
  7. TRIAMCINOLONE [Concomitant]
     Active Substance: TRIAMCINOLONE

REACTIONS (3)
  - Feeling abnormal [None]
  - Anger [None]
  - Sensory disturbance [None]

NARRATIVE: CASE EVENT DATE: 20220930
